FAERS Safety Report 25450469 (Version 1)
Quarter: 2025Q2

REPORT INFORMATION
  Report Type: Spontaneous
  Country: US (occurrence: None)
  Receive Date: 20250617
  Receipt Date: 20250617
  Transmission Date: 20250716
  Serious: Yes (Other)
  Sender: FDA-CTU
  Company Number: None

PATIENT
  Age: 76 Year
  Sex: Female

DRUGS (3)
  1. SYNVISC-ONE [Suspect]
     Active Substance: HYLAN G-F 20
     Indication: Osteoarthritis
  2. GEMTESA [Suspect]
     Active Substance: VIBEGRON
  3. JARDIANCE [Suspect]
     Active Substance: EMPAGLIFLOZIN

REACTIONS (1)
  - Cardiac failure [None]
